FAERS Safety Report 5202298-9 (Version None)
Quarter: 2006Q4

REPORT INFORMATION
  Report Type: 
  Country: None (occurrence: None)
  Receive Date: 20061003
  Receipt Date: 20060620
  Transmission Date: 20070319
  Serious: Yes (Other)
  Sender: FDA-Public Use
  Company Number: US-JNJFOC-20060605349

PATIENT
  Sex: Male

DRUGS (1)
  1. ULTRAM SR [Suspect]
     Indication: PAIN
     Dosage: ORAL
     Route: 048

REACTIONS (2)
  - HEART RATE INCREASED [None]
  - PALPITATIONS [None]
